FAERS Safety Report 5142760-0 (Version None)
Quarter: 2006Q4

REPORT INFORMATION
  Report Type: 
  Country: None (occurrence: None)
  Receive Date: 20061027
  Receipt Date: 20061016
  Transmission Date: 20070319
  Serious: Yes (Hospitalization)
  Sender: FDA-Public Use
  Company Number: US200607002431

PATIENT
  Age: 49 Year
  Sex: Male

DRUGS (3)
  1. HUMALOG MIX 50/50 [Suspect]
     Indication: DIABETES MELLITUS
     Dates: start: 20060601, end: 20060101
  2. HUMULIN 70/30 [Suspect]
  3. HUMALOG 50NPL/50L PEN (HUMALOG 50 NPL .50L PEN) [Concomitant]

REACTIONS (1)
  - CEREBROVASCULAR ACCIDENT [None]
